FAERS Safety Report 5095558-6 (Version None)
Quarter: 2006Q3

REPORT INFORMATION
  Report Type: 
  Country: None (occurrence: None)
  Receive Date: 20060901
  Receipt Date: 20060814
  Transmission Date: 20061208
  Serious: No
  Sender: FDA-Public Use
  Company Number: DE-ABBOTT-06P-062-0340861-00

PATIENT
  Sex: Female

DRUGS (1)
  1. ZEMPLAR [Suspect]
     Indication: DRUG USE FOR UNKNOWN INDICATION
     Dates: end: 20060728

REACTIONS (2)
  - CARDIAC FAILURE [None]
  - MITRAL VALVE INCOMPETENCE [None]
